FAERS Safety Report 5216784-9 (Version None)
Quarter: 2007Q1

REPORT INFORMATION
  Report Type: 
  Country: None (occurrence: None)
  Receive Date: 20070118
  Receipt Date: 20070109
  Transmission Date: 20070707
  Serious: Yes (Hospitalization)
  Sender: FDA-Public Use
  Company Number: 20060239

PATIENT
  Age: 42 Year
  Sex: Female

DRUGS (1)
  1. VENOFER [Suspect]
     Indication: DRUG USE FOR UNKNOWN INDICATION
     Dosage: 400MG IV INTRAVENOUS DRIP
     Route: 041
     Dates: start: 20060920, end: 20060920

REACTIONS (5)
  - HEMIPLEGIA [None]
  - INCORRECT DRUG ADMINISTRATION RATE [None]
  - INFUSION RELATED REACTION [None]
  - PARAESTHESIA [None]
  - TRANSIENT ISCHAEMIC ATTACK [None]
